FAERS Safety Report 5558421-X (Version None)
Quarter: 2007Q4

REPORT INFORMATION
  Report Type: 
  Country: None (occurrence: None)
  Receive Date: 20071130
  Receipt Date: 20070907
  Transmission Date: 20080405
  Serious: No
  Sender: FDA-Public Use
  Company Number: US200709001608

PATIENT
  Age: 52 Year
  Sex: Female

DRUGS (5)
  1. BYETTA [Suspect]
     Indication: TYPE 2 DIABETES MELLITUS
     Dosage: 5 UG, 2/D, SUBCUTANEOUS; 10 UG, 2/D SUBCUTANEOUS;  5 UG, 2/D, SUBCUTANEOUS;  10 UG, 2/D, SUBCUTANEOU
     Route: 058
     Dates: start: 20050101, end: 20060101
  2. BYETTA [Suspect]
     Indication: TYPE 2 DIABETES MELLITUS
     Dosage: 5 UG, 2/D, SUBCUTANEOUS; 10 UG, 2/D SUBCUTANEOUS;  5 UG, 2/D, SUBCUTANEOUS;  10 UG, 2/D, SUBCUTANEOU
     Route: 058
     Dates: start: 20060101, end: 20070501
  3. BYETTA [Suspect]
     Indication: TYPE 2 DIABETES MELLITUS
     Dosage: 5 UG, 2/D, SUBCUTANEOUS; 10 UG, 2/D SUBCUTANEOUS;  5 UG, 2/D, SUBCUTANEOUS;  10 UG, 2/D, SUBCUTANEOU
     Route: 058
     Dates: start: 20070501, end: 20070801
  4. BYETTA [Suspect]
     Indication: TYPE 2 DIABETES MELLITUS
     Dosage: 5 UG, 2/D, SUBCUTANEOUS; 10 UG, 2/D SUBCUTANEOUS;  5 UG, 2/D, SUBCUTANEOUS;  10 UG, 2/D, SUBCUTANEOU
     Route: 058
     Dates: start: 20070802
  5. AVANDAMET [Concomitant]

REACTIONS (2)
  - BLOOD GLUCOSE DECREASED [None]
  - BLOOD GLUCOSE INCREASED [None]
